FAERS Safety Report 5056691-8 (Version None)
Quarter: 2006Q2

REPORT INFORMATION
  Report Type: 
  Country: None (occurrence: None)
  Receive Date: 20060616
  Receipt Date: 20060324
  Transmission Date: 20061013
  Serious: No
  Sender: FDA-Public Use
  Company Number: 2006US000649

PATIENT
  Age: 53 Year
  Sex: Female

DRUGS (4)
  1. VESICARE [Suspect]
     Indication: HYPERTONIC BLADDER
     Dosage: 5 MG, UID/QD, ORAL
     Route: 048
     Dates: start: 20060322
  2. METFORMIN (METFORMIN) [Concomitant]
  3. GLIPIZIDE [Concomitant]
  4. COZAAR [Concomitant]

REACTIONS (12)
  - DIARRHOEA [None]
  - DRUG INEFFECTIVE [None]
  - DRY MOUTH [None]
  - DRY THROAT [None]
  - DYSPHONIA [None]
  - EAR PAIN [None]
  - HEADACHE [None]
  - LIP DRY [None]
  - PHARYNGOLARYNGEAL PAIN [None]
  - PRURITUS [None]
  - URETHRAL PAIN [None]
  - VISION BLURRED [None]
